FAERS Safety Report 13274323 (Version 1)
Quarter: 2017Q1

REPORT INFORMATION
  Report Type: Spontaneous
  Country: US (occurrence: US)
  Receive Date: 20170227
  Receipt Date: 20170227
  Transmission Date: 20170428
  Serious: Yes (Other)
  Sender: FDA-Public Use
  Company Number: US-TEVA-743116USA

PATIENT
  Age: 11 Year
  Sex: Female

DRUGS (2)
  1. BLEOMYCIN [Suspect]
     Active Substance: BLEOMYCIN SULFATE
     Indication: MALFORMATION VENOUS
     Route: 050
  2. ALCOHOL. [Suspect]
     Active Substance: ALCOHOL
     Indication: MALFORMATION VENOUS
     Route: 050

REACTIONS (9)
  - Dysphonia [Unknown]
  - Blister [Unknown]
  - Tongue injury [Unknown]
  - Hypoaesthesia [Unknown]
  - Facial paralysis [Unknown]
  - Respiratory tract oedema [Unknown]
  - Subcutaneous abscess [Unknown]
  - Thermal burn [Unknown]
  - Decreased appetite [Unknown]
